FAERS Safety Report 23105544 (Version 1)
Quarter: 2023Q4

REPORT INFORMATION
  Report Type: Spontaneous
  Country: FR (occurrence: FR)
  Receive Date: 20231025
  Receipt Date: 20231025
  Transmission Date: 20240109
  Serious: Yes (Life-Threatening, Hospitalization, Other)
  Sender: FDA-Public Use
  Company Number: None

PATIENT
  Age: 53 Year
  Sex: Female
  Weight: 47.6 kg

DRUGS (3)
  1. KEYTRUDA [Suspect]
     Active Substance: PEMBROLIZUMAB
     Indication: Metastatic malignant melanoma
     Dosage: 400 MILLIGRAM, EVERY 6 WEEKS
     Route: 042
     Dates: start: 20220926, end: 20230605
  2. KISQALI [Interacting]
     Active Substance: RIBOCICLIB
     Indication: Metastatic malignant melanoma
     Dosage: 21 DAYS A DAY
     Route: 048
     Dates: start: 20230802, end: 20230914
  3. MEKTOVI [Suspect]
     Active Substance: BINIMETINIB
     Indication: Metastatic malignant melanoma
     Dosage: 3 DOSAGE FORM, Q12H
     Route: 048
     Dates: start: 20230802, end: 20230928

REACTIONS (5)
  - Mixed liver injury [Recovering/Resolving]
  - Interstitial lung disease [Recovering/Resolving]
  - Colitis [Recovered/Resolved]
  - Rash pruritic [Recovered/Resolved]
  - Diarrhoea [Recovered/Resolved]

NARRATIVE: CASE EVENT DATE: 20230617
